FAERS Safety Report 26198248 (Version 2)
Quarter: 2025Q4

REPORT INFORMATION
  Report Type: Spontaneous
  Country: TW (occurrence: TW)
  Receive Date: 20251224
  Receipt Date: 20251225
  Transmission Date: 20260118
  Serious: Yes (Other)
  Sender: REGENERON
  Company Number: TW-BAYER-2025A166650

PATIENT
  Sex: Male

DRUGS (1)
  1. EYLEA [Suspect]
     Active Substance: AFLIBERCEPT
     Indication: Neovascular age-related macular degeneration
     Dosage: RIGHT EYE, TOTAL FOR 3 DOSES?, 40 MG/ML
     Route: 031
     Dates: start: 2023

REACTIONS (1)
  - Subretinal fluid [Recovered/Resolved]
